FAERS Safety Report 4284245-X (Version None)
Quarter: 2004Q1

REPORT INFORMATION
  Report Type: 
  Country: None (occurrence: None)
  Receive Date: 20040130
  Receipt Date: 20040121
  Transmission Date: 20041129
  Serious: Yes (Hospitalization)
  Sender: FDA-Public Use
  Company Number: FR-JNJFOC-20031204461

PATIENT

DRUGS (8)
  1. REMICADE [Suspect]
     Indication: ANKYLOSING SPONDYLITIS
     Dosage: INTRAVENOUS
     Route: 042
     Dates: start: 20030702, end: 20031105
  2. NOCTRAN (NOCTRAN 10) [Concomitant]
  3. ACETAMINOPHEN [Concomitant]
  4. MORPHINE SULFATE [Concomitant]
  5. MOPRAL (0MEPRAZOLE) [Concomitant]
  6. PHOSPHALUGEL (ALUMINIUM PHOSPHATE GEL) [Concomitant]
  7. LOVENOX [Concomitant]
  8. DUPHALAC [Concomitant]

REACTIONS (18)
  - ANKYLOSING SPONDYLITIS [None]
  - BACK PAIN [None]
  - BRONCHITIS [None]
  - C-REACTIVE PROTEIN INCREASED [None]
  - DISEASE PROGRESSION [None]
  - DYSPEPSIA [None]
  - ESCHERICHIA INFECTION [None]
  - HAEMANGIOMA [None]
  - INFLAMMATION [None]
  - IRON DEFICIENCY ANAEMIA [None]
  - MUSCULOSKELETAL STIFFNESS [None]
  - POLLAKIURIA [None]
  - POLYP [None]
  - PYELONEPHRITIS [None]
  - PYREXIA [None]
  - RED BLOOD CELL SEDIMENTATION RATE INCREASED [None]
  - URINARY TRACT INFECTION [None]
  - VOMITING [None]
